FAERS Safety Report 8875807 (Version 3)
Quarter: 2015Q3

REPORT INFORMATION
  Report Type: Report from Study
  Country: US (occurrence: US)
  Receive Date: 20121023
  Receipt Date: 20150909
  Transmission Date: 20151125
  Serious: Yes (Death)
  Sender: FDA-Public Use
  Company Number: US-ROCHE-1133219

PATIENT
  Sex: Male

DRUGS (9)
  1. ZINC SULFATE [Concomitant]
     Active Substance: ZINC SULFATE\ZINC SULFATE ANHYDROUS
  2. RAPTIVA [Suspect]
     Active Substance: EFALIZUMAB
     Indication: PUSTULAR PSORIASIS
  3. AMARYL [Concomitant]
     Active Substance: GLIMEPIRIDE
  4. RAPTIVA [Suspect]
     Active Substance: EFALIZUMAB
     Indication: PSORIASIS
     Route: 065
  5. PEPCID [Concomitant]
     Active Substance: FAMOTIDINE
  6. PAXIL (UNITED STATES) [Concomitant]
     Route: 065
  7. ATENOLOL. [Concomitant]
     Active Substance: ATENOLOL
  8. MICRO K [Concomitant]
  9. LASIX [Concomitant]
     Active Substance: FUROSEMIDE

REACTIONS (1)
  - Death [Fatal]
